FAERS Safety Report 8131474-0 (Version None)
Quarter: 2012Q1

REPORT INFORMATION
  Report Type: 
  Country: None (occurrence: None)
  Receive Date: 20120213
  Receipt Date: 20120209
  Transmission Date: 20120608
  Serious: No
  Sender: FDA-Public Use
  Company Number: JP-JNJFOC-20110101101

PATIENT
  Sex: Female
  Weight: 49 kg

DRUGS (25)
  1. DOXORUBICIN HCL [Suspect]
     Dosage: CYCLE 3
     Route: 042
     Dates: start: 20100114, end: 20100114
  2. DOXORUBICIN HCL [Suspect]
     Dosage: CYCLE 4
     Route: 042
     Dates: start: 20100212, end: 20100212
  3. DOXORUBICIN HCL [Suspect]
     Dosage: CYCLE 5
     Route: 042
     Dates: start: 20100312, end: 20100312
  4. CARBOPLATIN [Concomitant]
     Route: 041
     Dates: start: 20091217, end: 20091217
  5. CARBOPLATIN [Concomitant]
     Route: 041
     Dates: start: 20100212, end: 20100212
  6. DOXORUBICIN HCL [Suspect]
     Indication: OVARIAN CANCER RECURRENT
     Dosage: CYCLE 1
     Route: 042
     Dates: start: 20091119, end: 20091119
  7. DAI-KENCHU-TO [Concomitant]
     Indication: NEUROPATHY PERIPHERAL
     Route: 048
  8. CARBOPLATIN [Concomitant]
     Route: 041
     Dates: start: 20100114, end: 20100114
  9. FAMOTIDINE [Concomitant]
     Indication: GASTRITIS
     Route: 048
  10. DECADRON [Concomitant]
     Indication: RASH
     Route: 041
     Dates: start: 20091119, end: 20091119
  11. DECADRON [Concomitant]
     Indication: INFUSION RELATED REACTION
     Route: 041
     Dates: start: 20091119, end: 20091119
  12. DOXORUBICIN HCL [Suspect]
     Dosage: CYCLE 2
     Route: 042
     Dates: start: 20091217, end: 20091217
  13. AMOBAN [Concomitant]
     Indication: INSOMNIA
     Route: 048
  14. MAGNESIUM OXIDE [Concomitant]
     Indication: CONSTIPATION
     Route: 048
  15. CARBOPLATIN [Concomitant]
     Indication: OVARIAN CANCER RECURRENT
     Route: 041
     Dates: start: 20100421, end: 20100421
  16. GOSHA-JINKI-GAN [Concomitant]
     Indication: NEUROPATHY PERIPHERAL
     Route: 048
  17. ASPIRIN [Concomitant]
     Indication: AORTIC VALVE INCOMPETENCE
     Route: 048
  18. ALENDRONATE SODIUM [Concomitant]
     Indication: OSTEOPOROSIS
     Route: 048
  19. METHYCOBAL [Concomitant]
     Indication: NEUROPATHY PERIPHERAL
     Route: 048
  20. DOXORUBICIN HCL [Suspect]
     Dosage: CYCLE 6
     Route: 042
     Dates: start: 20100421, end: 20100421
  21. CARBOPLATIN [Concomitant]
     Route: 041
     Dates: start: 20091119, end: 20091119
  22. SILECE [Concomitant]
     Indication: INSOMNIA
     Route: 048
  23. LAC-B [Concomitant]
     Indication: CONSTIPATION
     Route: 048
  24. PYDOXAL [Concomitant]
     Indication: NEUROPATHY PERIPHERAL
     Route: 048
  25. CARBOPLATIN [Concomitant]
     Route: 041
     Dates: start: 20100312, end: 20100312

REACTIONS (1)
  - BLOOD ALBUMIN DECREASED [None]
